FAERS Safety Report 8160627-0 (Version None)
Quarter: 2012Q1

REPORT INFORMATION
  Report Type: 
  Country: None (occurrence: None)
  Receive Date: 20120223
  Receipt Date: 20120214
  Transmission Date: 20120608
  Serious: Yes (Other)
  Sender: FDA-Public Use
  Company Number: GXBR2012US000687

PATIENT
  Sex: Male
  Weight: 72.562 kg

DRUGS (7)
  1. ULTRAM [Concomitant]
     Indication: ARTHRITIS
     Dosage: 7 ULTRAM 50MG PILLS PER DAY
     Route: 048
  2. NITROSTAT [Concomitant]
     Indication: ANGINA PECTORIS
     Dosage: UNK DF, PRN
     Route: 060
     Dates: start: 20040101
  3. FLUTICASONE PROPIONATE [Concomitant]
     Indication: RHINITIS
     Dosage: 100 UG EACH NOSTRIL, QD
     Route: 045
  4. ULTRAM [Concomitant]
     Indication: BACK INJURY
  5. AMOXICILLIN [Suspect]
     Indication: INFECTION PROPHYLAXIS
     Dosage: 500 MG, TID
     Route: 048
     Dates: start: 20111011, end: 20111019
  6. AMOXICILLIN [Suspect]
     Dosage: 2000 MG PO ONE HOUR PRIOR TO TOOTH EXTRACTION
     Route: 048
     Dates: start: 20111122, end: 20111122
  7. MAGNESIUM CHLORIDE [Concomitant]
     Indication: SUPPLEMENTATION THERAPY
     Dosage: 300 MG, QD

REACTIONS (4)
  - COLD SWEAT [None]
  - ABDOMINAL DISCOMFORT [None]
  - BLOOD PRESSURE INCREASED [None]
  - MALAISE [None]
